FAERS Safety Report 21905595 (Version 2)
Quarter: 2023Q1

REPORT INFORMATION
  Report Type: Spontaneous
  Country: US (occurrence: US)
  Receive Date: 20230124
  Receipt Date: 20230309
  Transmission Date: 20230418
  Serious: Yes (Hospitalization)
  Sender: FDA-Public Use
  Company Number: US-BoehringerIngelheim-2023-BI-214304

PATIENT
  Age: 84 Year
  Sex: Female

DRUGS (1)
  1. TRADJENTA [Suspect]
     Active Substance: LINAGLIPTIN
     Indication: Type 2 diabetes mellitus
     Dosage: BEFORE BREAKFAST
     Route: 048
     Dates: start: 20200530

REACTIONS (6)
  - Dyspnoea [Unknown]
  - Nausea [Unknown]
  - Heart rate decreased [Recovering/Resolving]
  - Hypertension [Recovered/Resolved]
  - Hypertension [Unknown]
  - Thyroid disorder [Unknown]

NARRATIVE: CASE EVENT DATE: 20230101
